FAERS Safety Report 7887035-1 (Version None)
Quarter: 2011Q4

REPORT INFORMATION
  Report Type: 
  Country: None (occurrence: None)
  Receive Date: 20111102
  Receipt Date: 20110714
  Transmission Date: 20120403
  Serious: No
  Sender: FDA-Public Use
  Company Number: US-AMGEN-USASP2011035810

PATIENT
  Age: 30 Year
  Sex: Female
  Weight: 99.32 kg

DRUGS (8)
  1. FOLIC ACID [Concomitant]
     Dosage: 1 MG, UNK
  2. METHOTREXATE [Concomitant]
     Dosage: 2.5 MG, UNK
  3. CALCIUM [Concomitant]
     Dosage: 600 MG, UNK
  4. ENBREL [Suspect]
     Indication: PRODUCT USED FOR UNKNOWN INDICATION
     Dosage: 50 MG, QWK
  5. VITAMIN D [Concomitant]
     Dosage: 1000 IU, UNK
  6. IBUPROFEN [Concomitant]
     Dosage: 200 MG, UNK
  7. SULFASALAZINE [Concomitant]
     Dosage: 500 MG, UNK
  8. CLARITIN                           /00413701/ [Concomitant]
     Dosage: 10 MG, UNK

REACTIONS (5)
  - INJECTION SITE PRURITUS [None]
  - INJECTION SITE SWELLING [None]
  - INJECTION SITE PAIN [None]
  - INJECTION SITE INDURATION [None]
  - INJECTION SITE ERYTHEMA [None]
